FAERS Safety Report 8519634-8 (Version None)
Quarter: 2012Q3

REPORT INFORMATION
  Report Type: 
  Country: None (occurrence: None)
  Receive Date: 20120718
  Receipt Date: 20120711
  Transmission Date: 20120928
  Serious: No
  Sender: FDA-Public Use
  Company Number: US-009507513-1207USA002946

PATIENT

DRUGS (9)
  1. VICTRELIS [Suspect]
     Indication: HEPATITIS C
     Dosage: 800 MG, Q8H
     Route: 048
     Dates: start: 20120601
  2. LACTULOSE [Concomitant]
  3. ACETAMINOPHEN [Concomitant]
  4. DIOVAN [Concomitant]
  5. OMEPRAZOLE [Concomitant]
  6. PEG-INTRON [Suspect]
     Indication: HEPATITIS C
     Dosage: 120 MICROGRAM, QW
     Route: 058
  7. RIBAVIRIN [Suspect]
  8. PROMACTA [Concomitant]
  9. CETIRIZINE HYDROCHLORIDE [Concomitant]
     Dosage: UNK, PRN

REACTIONS (3)
  - FATIGUE [None]
  - WEIGHT DECREASED [None]
  - DECREASED APPETITE [None]
